FAERS Safety Report 12256371 (Version 1)
Quarter: 2016Q2

REPORT INFORMATION
  Report Type: Spontaneous
  Country: US (occurrence: None)
  Receive Date: 20160411
  Receipt Date: 20160411
  Transmission Date: 20160815
  Serious: Yes (Life-Threatening, Hospitalization)
  Sender: FDA-Public Use
  Company Number: None

PATIENT
  Age: 77 Year
  Sex: Male
  Weight: 70.2 kg

DRUGS (2)
  1. ENOXAPARIN [Suspect]
     Active Substance: ENOXAPARIN
     Indication: ATRIAL FIBRILLATION
     Route: 058
     Dates: start: 20160304, end: 20160314
  2. ENOXAPARIN [Suspect]
     Active Substance: ENOXAPARIN
     Indication: DEEP VEIN THROMBOSIS
     Route: 058
     Dates: start: 20160304, end: 20160314

REACTIONS (8)
  - Anaemia [None]
  - Spinal compression fracture [None]
  - Haematochezia [None]
  - Haemorrhoids [None]
  - Muscle haemorrhage [None]
  - Diverticulum [None]
  - Retroperitoneal haemorrhage [None]
  - Fall [None]

NARRATIVE: CASE EVENT DATE: 20160314
